FAERS Safety Report 16699767 (Version 1)
Quarter: 2019Q3

REPORT INFORMATION
  Report Type: Spontaneous
  Country: AU (occurrence: AU)
  Receive Date: 20190813
  Receipt Date: 20190813
  Transmission Date: 20191004
  Serious: Yes (Other)
  Sender: FDA-Public Use
  Company Number: AU-ELI_LILLY_AND_COMPANY-AU201908003275

PATIENT
  Age: 62 Year
  Sex: Female

DRUGS (6)
  1. MIRTAZAPINE. [Concomitant]
     Active Substance: MIRTAZAPINE
     Indication: MAJOR DEPRESSION
     Dosage: 45 MG, EACH EVENING
     Route: 048
  2. ESMOLOL [Concomitant]
     Active Substance: ESMOLOL HYDROCHLORIDE
  3. DULOXETINE HYDROCHLORIDE. [Suspect]
     Active Substance: DULOXETINE HYDROCHLORIDE
     Indication: MAJOR DEPRESSION
     Dosage: 30 MG, EACH MORNING
     Route: 048
  4. METARAMINOL [Concomitant]
     Active Substance: METARAMINOL
  5. REMIFENTANIL [Concomitant]
     Active Substance: REMIFENTANIL
  6. OLANZAPINE. [Concomitant]
     Active Substance: OLANZAPINE
     Indication: MAJOR DEPRESSION
     Dosage: 5 MG, EACH EVENING
     Route: 048

REACTIONS (4)
  - Arrhythmia [Unknown]
  - Hypophagia [Unknown]
  - Physical deconditioning [Unknown]
  - Therapeutic response decreased [Unknown]
